FAERS Safety Report 4579973-2 (Version None)
Quarter: 2005Q1

REPORT INFORMATION
  Report Type: 
  Country: None (occurrence: None)
  Receive Date: 20050214
  Receipt Date: 20041115
  Transmission Date: 20050727
  Serious: Yes (Hospitalization)
  Sender: FDA-Public Use
  Company Number: BE-ROCHE-386350

PATIENT
  Age: 35 Year
  Sex: Male
  Weight: 72.9 kg

DRUGS (9)
  1. DACLIZUMAB [Suspect]
     Route: 042
     Dates: start: 20041016, end: 20041213
  2. MYCOPHENOLATE MOFETIL [Suspect]
     Route: 048
     Dates: start: 20041016, end: 20041016
  3. CYCLOSPORINE [Suspect]
     Route: 048
     Dates: start: 20041016
  4. CYCLOSPORINE [Suspect]
     Route: 048
     Dates: end: 20050115
  5. METHYLPREDNISOLONE [Suspect]
     Route: 048
  6. TERAZOSINE [Concomitant]
     Route: 048
     Dates: start: 20041030
  7. VALGANCICLOVIR [Concomitant]
     Route: 048
     Dates: start: 20041119
  8. AMLODIPINE [Concomitant]
     Route: 048
     Dates: start: 20030730
  9. OMEPRAZOLE [Concomitant]
     Dates: start: 20041124

REACTIONS (2)
  - CYTOMEGALOVIRUS INFECTION [None]
  - URINARY TRACT INFECTION [None]
